FAERS Safety Report 18474357 (Version 3)
Quarter: 2020Q4

REPORT INFORMATION
  Report Type: Spontaneous
  Country: IT (occurrence: IT)
  Receive Date: 20201106
  Receipt Date: 20201120
  Transmission Date: 20210114
  Serious: Yes (Hospitalization)
  Sender: FDA-Public Use
  Company Number: IT-009507513-2011ITA000832

PATIENT
  Age: 70 Year
  Sex: Male

DRUGS (8)
  1. INVANZ [Suspect]
     Active Substance: ERTAPENEM SODIUM
     Indication: PYREXIA
     Dosage: 1 DOSAGE FORM, QD / DOSAGE FORM: SOLUTION FOR INFUSION
     Route: 042
     Dates: start: 20200924, end: 20201011
  2. INHIXA [Concomitant]
     Active Substance: ENOXAPARIN SODIUM
     Dosage: 4000 KILO-INTERNATIONAL UNIT
  3. CALCIUM GLUCONATE. [Concomitant]
     Active Substance: CALCIUM GLUCONATE
     Dosage: UNK
  4. OMEPRAZOLE. [Concomitant]
     Active Substance: OMEPRAZOLE
     Dosage: UNK
  5. TARGOSID [Concomitant]
     Active Substance: TEICOPLANIN
  6. ALBITAL [Concomitant]
     Active Substance: ALBUMIN HUMAN
     Dosage: UNK
  7. KANRENOL [Concomitant]
     Active Substance: CANRENOATE POTASSIUM
     Dosage: 50 MILLIGRAM, UNK
  8. LASIX [Concomitant]
     Active Substance: FUROSEMIDE
     Dosage: UNK

REACTIONS (4)
  - Clonus [Recovering/Resolving]
  - Confusional state [Recovering/Resolving]
  - Depressed level of consciousness [Recovering/Resolving]
  - Acute respiratory failure [Recovering/Resolving]

NARRATIVE: CASE EVENT DATE: 20201011
